FAERS Safety Report 18551620 (Version 1)
Quarter: 2020Q4

REPORT INFORMATION
  Report Type: Spontaneous
  Country: US (occurrence: US)
  Receive Date: 20201126
  Receipt Date: 20201126
  Transmission Date: 20210114
  Serious: Yes (Other)
  Sender: FDA-Public Use
  Company Number: US-PURDUE-USA-2020-0177922

PATIENT
  Sex: Female

DRUGS (2)
  1. OXYCONTIN [Suspect]
     Active Substance: OXYCODONE HYDROCHLORIDE
     Indication: PRODUCT USED FOR UNKNOWN INDICATION
     Dosage: UNK
     Route: 048
  2. MS CONTIN [Suspect]
     Active Substance: MORPHINE SULFATE
     Indication: PRODUCT USED FOR UNKNOWN INDICATION
     Dosage: UNK
     Route: 048

REACTIONS (25)
  - Dizziness [Unknown]
  - Blood urine [Unknown]
  - Urinary tract infection [Unknown]
  - Pain [Unknown]
  - Dry mouth [Unknown]
  - Fluid retention [Unknown]
  - Anxiety [Unknown]
  - Arthralgia [Unknown]
  - Emotional distress [Unknown]
  - Major depression [Unknown]
  - Constipation [Unknown]
  - Sleep apnoea syndrome [Unknown]
  - Arthritis [Unknown]
  - Asthenia [Unknown]
  - Erythema [Unknown]
  - Confusional state [Unknown]
  - Urinary retention [Unknown]
  - Nausea [Unknown]
  - Cystitis [Unknown]
  - Surgery [Unknown]
  - Sexual inhibition [Unknown]
  - Amnesia [Unknown]
  - Migraine [Unknown]
  - Cardiac failure [Unknown]
  - Fall [Unknown]
